FAERS Safety Report 9200687 (Version 1)
Quarter: 2013Q1

REPORT INFORMATION
  Report Type: Spontaneous
  Country: TW (occurrence: TW)
  Receive Date: 20130331
  Receipt Date: 20130331
  Transmission Date: 20140127
  Serious: Yes (Hospitalization, Other)
  Sender: FDA-Public Use
  Company Number: TW-ELI_LILLY_AND_COMPANY-TW201303009167

PATIENT
  Age: 40 Year
  Sex: Female

DRUGS (10)
  1. OLANZAPINE [Suspect]
     Indication: PSYCHOTIC DISORDER
     Dosage: 20 MG, QD
  2. CLOZAPINE [Concomitant]
     Indication: SCHIZOPHRENIA, PARANOID TYPE
     Dosage: 150 MG, QD
  3. CLOZAPINE [Concomitant]
     Dosage: 200 MG, QD
  4. PROPRANOLOL [Concomitant]
  5. ZOLPIDEM [Concomitant]
  6. ESTAZOLAM [Concomitant]
  7. BIPERIDEN [Concomitant]
  8. MAGNESIUM OXIDE [Concomitant]
  9. LORATADINE [Concomitant]
  10. FEXOFENADINE [Concomitant]

REACTIONS (6)
  - Neutropenia [Recovered/Resolved]
  - Drug ineffective [Unknown]
  - Hallucination [None]
  - Delusion [None]
  - Fear [None]
  - Negativism [None]
